FAERS Safety Report 6765469-6 (Version None)
Quarter: 2010Q2

REPORT INFORMATION
  Report Type: 
  Country: None (occurrence: None)
  Receive Date: 20100611
  Receipt Date: 20100527
  Transmission Date: 20101027
  Serious: Yes (Other)
  Sender: FDA-Public Use
  Company Number: PHFR2010IE00823

PATIENT
  Sex: Male

DRUGS (1)
  1. CLOZARIL [Suspect]
     Dosage: UNK
     Dates: start: 20080215, end: 20100527

REACTIONS (4)
  - APATHY [None]
  - DRUG INEFFECTIVE [None]
  - PARANOIA [None]
  - THOUGHT INSERTION [None]
